FAERS Safety Report 9603073 (Version 2)
Quarter: 2013Q4

REPORT INFORMATION
  Report Type: Report from Study
  Country: CA (occurrence: CA)
  Receive Date: 20131007
  Receipt Date: 20131025
  Transmission Date: 20140711
  Serious: Yes (Hospitalization)
  Sender: FDA-Public Use
  Company Number: CA-ABBVIE-13P-028-1153688-00

PATIENT
  Sex: Female
  Weight: 62.2 kg

DRUGS (2)
  1. HUMIRA [Suspect]
     Indication: CROHN^S DISEASE
     Route: 058
     Dates: start: 201104, end: 20130720
  2. HUMIRA [Suspect]
     Dosage: NOT SPECIFIED
     Dates: start: 20130927

REACTIONS (8)
  - Gastrointestinal tract irritation [Recovering/Resolving]
  - Inflammatory bowel disease [Unknown]
  - Asthenia [Unknown]
  - Leukocytosis [Unknown]
  - Blood alkaline phosphatase increased [Unknown]
  - Gastritis [Unknown]
  - Oesophagitis [Unknown]
  - Diarrhoea [Unknown]
